FAERS Safety Report 23977723 (Version 7)
Quarter: 2025Q2

REPORT INFORMATION
  Report Type: Spontaneous
  Country: IN (occurrence: IN)
  Receive Date: 20240614
  Receipt Date: 20250611
  Transmission Date: 20250716
  Serious: Yes (Other)
  Sender: PFIZER
  Company Number: IN-PFIZER INC-PV202400076343

PATIENT
  Age: 67 Year
  Sex: Male

DRUGS (9)
  1. LORLATINIB [Suspect]
     Active Substance: LORLATINIB
     Dosage: 100 MG, 1X/DAY
     Route: 048
     Dates: start: 20240407
  2. LORLATINIB [Suspect]
     Active Substance: LORLATINIB
     Dates: start: 202404
  3. LORLATINIB [Suspect]
     Active Substance: LORLATINIB
     Dosage: 50 MG, 1X/DAY (1-0-0/30 DAYS/EMPTY STOMACH)
     Route: 048
  4. LORLATINIB [Suspect]
     Active Substance: LORLATINIB
     Dosage: 1-0-0 X 30 D
     Route: 048
  5. AUTRIN XT [Concomitant]
     Dosage: UNK, 1X/DAY (0-0-1/30 DAYS/AFTER FOOD)
  6. FOLVITE MB [Concomitant]
     Dosage: UNK, 2X/DAY (1-0-1/30 DAYS/AFTER FOOD)
  7. TOSSEX [Concomitant]
     Dosage: 10 ML, 3X/DAY (1-1-1/30 DAYS/AFTER FOOD)
  8. MIRABEG SR [Concomitant]
     Dosage: 25 MG, 1X/DAY (0-0-1/30 DAYS/AT BEDTIME)
  9. TOLVAPTAN [Concomitant]
     Active Substance: TOLVAPTAN
     Dosage: 15 MG, 1X/DAY (1-0-0/3 DAYS/AFTER FOOD)

REACTIONS (15)
  - Hallucination [Unknown]
  - Haemoglobin decreased [Recovered/Resolved]
  - Platelet count increased [Recovered/Resolved]
  - Somnolence [Unknown]
  - Abnormal dreams [Unknown]
  - Blood glucose increased [Unknown]
  - White blood cell count increased [Unknown]
  - Blood sodium decreased [Unknown]
  - Blood chloride decreased [Unknown]
  - Alanine aminotransferase increased [Unknown]
  - Aspartate aminotransferase increased [Unknown]
  - Blood pressure systolic increased [Unknown]
  - Dyslipidaemia [Unknown]
  - Hypertriglyceridaemia [Unknown]
  - Wrong technique in product usage process [Unknown]

NARRATIVE: CASE EVENT DATE: 20240807
